FAERS Safety Report 10130734 (Version 3)
Quarter: 2014Q2

REPORT INFORMATION
  Report Type: Spontaneous
  Country: US (occurrence: US)
  Receive Date: 20140428
  Receipt Date: 20140624
  Transmission Date: 20141212
  Serious: Yes (Other)
  Sender: FDA-Public Use
  Company Number: US-PFIZER INC-2014116688

PATIENT
  Age: 51 Year
  Sex: Female

DRUGS (3)
  1. CHANTIX [Suspect]
     Indication: SMOKING CESSATION THERAPY
     Dosage: 1 MG, 2X/DAY
     Route: 048
     Dates: start: 20140418, end: 20140423
  2. LEXAPRO [Concomitant]
     Indication: DEPRESSION
     Dosage: 20 MG, DAILY
     Route: 048
  3. LEXAPRO [Concomitant]
     Indication: ANXIETY

REACTIONS (5)
  - Depression [Recovered/Resolved]
  - Anxiety [Unknown]
  - Irritability [Unknown]
  - Heart rate increased [Unknown]
  - Chest discomfort [Unknown]
